FAERS Safety Report 10958485 (Version 2)
Quarter: 2015Q2

REPORT INFORMATION
  Report Type: Report from Study
  Country: BR (occurrence: BR)
  Receive Date: 20150326
  Receipt Date: 20150409
  Transmission Date: 20150821
  Serious: Yes (Other)
  Sender: FDA-Public Use
  Company Number: ALCN2015BR001905

PATIENT
  Sex: Female

DRUGS (2)
  1. VITALUX PLUS [Suspect]
     Active Substance: VITAMINS
     Dosage: 2 DF, BID
     Route: 048
  2. VITALUX PLUS [Suspect]
     Active Substance: VITAMINS
     Indication: RETINOPATHY
     Dosage: 2 DF, QD
     Route: 048

REACTIONS (3)
  - Condition aggravated [Not Recovered/Not Resolved]
  - Incorrect dose administered [Not Recovered/Not Resolved]
  - Retinopathy [Not Recovered/Not Resolved]
